FAERS Safety Report 12414808 (Version 1)
Quarter: 2016Q2

REPORT INFORMATION
  Report Type: Spontaneous
  Country: AR (occurrence: AR)
  Receive Date: 20160529
  Receipt Date: 20160529
  Transmission Date: 20160815
  Serious: Yes (Other)
  Sender: FDA-Public Use
  Company Number: PHHY2016AR065758

PATIENT
  Age: 65 Year
  Sex: Male

DRUGS (1)
  1. DIOVAN D [Suspect]
     Active Substance: HYDROCHLOROTHIAZIDE\VALSARTAN
     Indication: HYPERTENSION
     Dosage: 160 MG, QD
     Route: 065
     Dates: start: 2006

REACTIONS (9)
  - Apnoea [Unknown]
  - Dyspnoea [Unknown]
  - Chondropathy [Not Recovered/Not Resolved]
  - Bone disorder [Not Recovered/Not Resolved]
  - Arthralgia [Not Recovered/Not Resolved]
  - Wrong technique in product usage process [Unknown]
  - Meniscus injury [Unknown]
  - Oropharyngeal discomfort [Unknown]
  - Nasal turbinate hypertrophy [Recovered/Resolved]
